FAERS Safety Report 8534541-2 (Version None)
Quarter: 2012Q3

REPORT INFORMATION
  Report Type: 
  Country: None (occurrence: None)
  Receive Date: 20120724
  Receipt Date: 20120711
  Transmission Date: 20120928
  Serious: No
  Sender: FDA-Public Use
  Company Number: US-ASTRAZENECA-2011SE24563

PATIENT
  Age: 47 Year
  Sex: Female
  Weight: 95.3 kg

DRUGS (8)
  1. SEROQUEL [Suspect]
     Route: 048
  2. GABAPENTIN [Concomitant]
     Indication: ANXIETY
  3. ZOLOFT [Concomitant]
     Indication: BIPOLAR DISORDER
  4. ZOLOFT [Concomitant]
     Indication: DEPRESSION
  5. SEROQUEL [Suspect]
     Route: 048
     Dates: start: 20120101
  6. XANAX [Concomitant]
  7. SEROQUEL [Suspect]
     Indication: BIPOLAR DISORDER
     Route: 048
  8. TRAZODONE HCL [Concomitant]

REACTIONS (15)
  - NERVOUSNESS [None]
  - ABNORMAL DREAMS [None]
  - DRUG INEFFECTIVE [None]
  - ANXIETY [None]
  - WEIGHT INCREASED [None]
  - FEELING ABNORMAL [None]
  - CHEST PAIN [None]
  - DEPRESSED MOOD [None]
  - STRESS [None]
  - PSYCHOMOTOR HYPERACTIVITY [None]
  - DRUG DOSE OMISSION [None]
  - CONDITION AGGRAVATED [None]
  - MOOD SWINGS [None]
  - MALAISE [None]
  - LAZINESS [None]
